FAERS Safety Report 6218794-1 (Version None)
Quarter: 2009Q2

REPORT INFORMATION
  Report Type: 
  Country: None (occurrence: None)
  Receive Date: 20090608
  Receipt Date: 20090529
  Transmission Date: 20091009
  Serious: Yes (Hospitalization, Other)
  Sender: FDA-Public Use
  Company Number: IT-ABBOTT-09P-083-0578280-00

PATIENT
  Age: 66 Year
  Sex: Male

DRUGS (11)
  1. WARFARIN [Suspect]
     Indication: DRUG USE FOR UNKNOWN INDICATION
     Dosage: 3.75 MG TO 5 MG DAILY
  2. WARFARIN [Interacting]
     Dosage: UP TO 10 MG DAILY
  3. WARFARIN [Interacting]
     Dosage: 3.75 MG TO 5 MG DAILY
  4. LOPINAVIR AND RITONAVIR [Interacting]
     Indication: ANTIRETROVIRAL THERAPY
     Dosage: 400/100 MG TWICE DAILY
  5. LOPINAVIR AND RITONAVIR [Interacting]
     Dosage: NOT REPORTED
  6. ZIDOVUDINE [Concomitant]
     Indication: ANTIRETROVIRAL THERAPY
     Dosage: NOT REPORTED
  7. ZIDOVUDINE [Concomitant]
     Dosage: NOT REPORTED
  8. LAMIVUDINE [Concomitant]
     Indication: ANTIRETROVIRAL THERAPY
     Dosage: NOT REPORTED
  9. LAMIVUDINE [Concomitant]
     Dosage: NOT REPORTED
  10. ABACAVIR [Concomitant]
     Indication: ANTIRETROVIRAL THERAPY
     Dosage: NOT REPORTED
  11. TENOFOVIR [Concomitant]
     Indication: ANTIRETROVIRAL THERAPY
     Dosage: NOT REPORTED

REACTIONS (2)
  - DRUG INTERACTION [None]
  - INTERNATIONAL NORMALISED RATIO DECREASED [None]
